FAERS Safety Report 6186189-5 (Version None)
Quarter: 2009Q2

REPORT INFORMATION
  Report Type: 
  Country: None (occurrence: None)
  Receive Date: 20090511
  Receipt Date: 20090430
  Transmission Date: 20091009
  Serious: Yes (Other)
  Sender: FDA-Public Use
  Company Number: JP-PFIZER INC-2009208516

PATIENT
  Age: 66 Year

DRUGS (1)
  1. MIGLITOL [Suspect]
     Dosage: UNK MG, UNK
     Route: 048
     Dates: start: 20081202, end: 20090113

REACTIONS (1)
  - HEPATIC FUNCTION ABNORMAL [None]
